FAERS Safety Report 10389278 (Version 1)
Quarter: 2014Q3

REPORT INFORMATION
  Report Type: Report from Study
  Country: GB (occurrence: GB)
  Receive Date: 20140818
  Receipt Date: 20140818
  Transmission Date: 20150326
  Serious: Yes (Other)
  Sender: FDA-Public Use
  Company Number: GB-009507513-1408GBR008452

PATIENT
  Sex: Male

DRUGS (3)
  1. VORINOSTAT [Suspect]
     Active Substance: VORINOSTAT
     Indication: MYELODYSPLASTIC SYNDROME
     Dosage: 300 MG, BID, CYCLE 4
     Route: 048
     Dates: start: 20140625, end: 20140701
  2. AZACITIDINE. [Suspect]
     Active Substance: AZACITIDINE
     Indication: MYELODYSPLASTIC SYNDROME
     Dosage: 140 MG/M2, QD, CYCLE 1
     Route: 058
     Dates: start: 20140317
  3. AZACITIDINE. [Suspect]
     Active Substance: AZACITIDINE
     Dosage: 140 MG/M2, QD, CYCLE 4
     Route: 058
     Dates: end: 20140630

REACTIONS (1)
  - Haematuria [Recovered/Resolved]

NARRATIVE: CASE EVENT DATE: 20140701
